FAERS Safety Report 15278190 (Version 1)
Quarter: 2018Q3

REPORT INFORMATION
  Report Type: Spontaneous
  Country: IN (occurrence: IN)
  Receive Date: 20180814
  Receipt Date: 20180814
  Transmission Date: 20181010
  Serious: Yes (Death, Life-Threatening, Hospitalization, Other)
  Sender: FDA-Public Use
  Company Number: IN-ALLERGAN-1839432US

PATIENT
  Age: 21 Year
  Sex: Male

DRUGS (11)
  1. FLUOXETINE HCL UNK [Suspect]
     Active Substance: FLUOXETINE HYDROCHLORIDE
     Indication: SCHIZOPHRENIA
     Dosage: UNK
     Route: 065
  2. VITAMIN K [Concomitant]
     Active Substance: PHYTONADIONE
     Indication: POISONING DELIBERATE
     Dosage: 20 MG, QD
     Route: 030
  3. CEFOTAXIME [Concomitant]
     Active Substance: CEFOTAXIME SODIUM
     Indication: POISONING DELIBERATE
     Dosage: 1 G, Q12H
     Route: 065
  4. IMIPRAMINE [Concomitant]
     Active Substance: IMIPRAMINE
     Indication: SCHIZOPHRENIA
     Dosage: UNK
     Route: 065
  5. PHENERGAN [Concomitant]
     Active Substance: PROMETHAZINE HYDROCHLORIDE
     Indication: SCHIZOPHRENIA
     Dosage: 50 MG, Q12H
     Route: 030
  6. RINGERS LACTAT HARTMANN SOLUTION [Concomitant]
     Indication: POISONING DELIBERATE
     Dosage: 1 PINT OF IVF RINGER LACTATE
     Route: 042
  7. NORMAL SALINE [Concomitant]
     Active Substance: SODIUM CHLORIDE
     Indication: POISONING DELIBERATE
     Dosage: 1 PINT OF IVF NORMAL SALINE
     Route: 042
  8. HALOPERIDOL. [Interacting]
     Active Substance: HALOPERIDOL
     Indication: SCHIZOPHRENIA
     Dosage: 2.5 MG, Q12H
     Route: 065
  9. SODIUM CHLORIDE + GLUCOSE [Concomitant]
     Indication: POISONING DELIBERATE
     Dosage: 2 PINTS OF IVF DNS
     Route: 042
  10. SODIUM VALPROATE [Concomitant]
     Active Substance: VALPROATE SODIUM
     Indication: SCHIZOPHRENIA
     Dosage: UNK
     Route: 065
  11. RANITIDINE. [Concomitant]
     Active Substance: RANITIDINE
     Indication: POISONING DELIBERATE
     Dosage: 25 MG, Q12H
     Route: 042

REACTIONS (5)
  - Drug interaction [Not Recovered/Not Resolved]
  - Respiratory distress [Not Recovered/Not Resolved]
  - Electrocardiogram QT prolonged [Not Recovered/Not Resolved]
  - Off label use [Unknown]
  - Cardio-respiratory arrest [Fatal]
